FAERS Safety Report 5839695-4 (Version None)
Quarter: 2008Q3

REPORT INFORMATION
  Report Type: 
  Country: None (occurrence: None)
  Receive Date: 20080811
  Receipt Date: 20080730
  Transmission Date: 20090109
  Serious: Yes (Death, Other)
  Sender: FDA-Public Use
  Company Number: US-TYCO HEALTHCARE/MALLINCKRODT-T200801231

PATIENT

DRUGS (29)
  1. OPTIMARK [Suspect]
     Indication: ANGIOGRAM
     Dosage: 30 ML, SINGLE
     Dates: start: 20050405, end: 20050405
  2. CONTRAST MEDIA [Suspect]
     Indication: ANGIOGRAM
     Dosage: UNK, SINGLE
     Dates: start: 20030917, end: 20030917
  3. CONTRAST MEDIA [Suspect]
     Indication: ARTERIOGRAM
     Dosage: UNK, SINGLE
     Dates: start: 20041027, end: 20041027
  4. CONTRAST MEDIA [Suspect]
     Indication: NUCLEAR MAGNETIC RESONANCE IMAGING BRAIN
     Dosage: UNK, SINGLE
     Dates: start: 20051003, end: 20051003
  5. CONTRAST MEDIA [Suspect]
     Dates: start: 20051003, end: 20051003
  6. CONTRAST MEDIA [Suspect]
     Indication: COMPUTERISED TOMOGRAM ABDOMEN
     Dosage: UNK, SINGLE
     Dates: start: 20070327, end: 20070327
  7. CONTRAST MEDIA [Suspect]
     Indication: COMPUTERISED TOMOGRAM
     Dosage: UNK, SINGLE
     Dates: start: 20070703, end: 20070703
  8. SPIRONOLACTONE [Concomitant]
     Indication: CARDIAC FAILURE CONGESTIVE
  9. SPIRONOLACTONE [Concomitant]
     Indication: RENAL DISORDER
  10. PROCARDIA [Concomitant]
     Indication: ANGINA PECTORIS
  11. ZOCOR [Concomitant]
     Indication: BLOOD CHOLESTEROL
  12. ACCUPRIL [Concomitant]
     Indication: HYPERTENSION
  13. ACCUPRIL [Concomitant]
     Indication: CARDIAC FAILURE CONGESTIVE
  14. LASIX [Concomitant]
     Indication: CARDIAC FAILURE CONGESTIVE
  15. LASIX [Concomitant]
     Indication: RENAL DISORDER
  16. METOPROLOL SUCCINATE [Concomitant]
     Indication: CARDIAC DISORDER
  17. METOPROLOL SUCCINATE [Concomitant]
     Indication: HYPERTENSION
  18. NITROGLYCERIN [Concomitant]
     Indication: CHEST PAIN
     Dosage: UNK, TID
  19. DIATX                              /01502401/ [Concomitant]
     Indication: BLOOD PRESSURE
  20. ATENOLOL [Concomitant]
     Indication: BLOOD PRESSURE
     Dosage: UNK, BID
  21. DOXAZOSIN MESYLATE [Concomitant]
     Indication: BLOOD PRESSURE
  22. PLAVIX [Concomitant]
     Indication: CARDIAC DISORDER
  23. NIFEDIPINE [Concomitant]
     Indication: ANGINA PECTORIS
  24. FUROSEMIDE [Concomitant]
     Indication: CARDIAC DISORDER
  25. ZAROXOLYN [Concomitant]
     Indication: CARDIAC FAILURE CONGESTIVE
  26. ZAROXOLYN [Concomitant]
     Indication: BLOOD PRESSURE
  27. ALTACE [Concomitant]
     Indication: BLOOD PRESSURE
  28. KLOR-CON [Concomitant]
     Indication: BLOOD PRESSURE
  29. DESONIDE [Concomitant]
     Indication: NEPHROGENIC SYSTEMIC FIBROSIS
     Dosage: TI-WEEK

REACTIONS (3)
  - BASAL CELL CARCINOMA [None]
  - NEPHROGENIC SYSTEMIC FIBROSIS [None]
  - SUBDURAL HAEMATOMA [None]
